FAERS Safety Report 7978371-9 (Version None)
Quarter: 2011Q4

REPORT INFORMATION
  Report Type: 
  Country: None (occurrence: None)
  Receive Date: 20111214
  Receipt Date: 20111208
  Transmission Date: 20120403
  Serious: Yes (Congenital Anomaly, Other)
  Sender: FDA-Public Use
  Company Number: US-PFIZER INC-2011300802

PATIENT
  Sex: Male
  Weight: 3.6 kg

DRUGS (1)
  1. ZOLOFT [Suspect]
     Indication: DEPRESSION
     Dosage: 100MG HALF TABLET PER DAY
     Route: 064

REACTIONS (2)
  - LIMB REDUCTION DEFECT [None]
  - MATERNAL EXPOSURE TIMING UNSPECIFIED [None]
